FAERS Safety Report 11672820 (Version 1)
Quarter: 2015Q4

REPORT INFORMATION
  Report Type: Spontaneous
  Country: US (occurrence: US)
  Receive Date: 20151028
  Receipt Date: 20151028
  Transmission Date: 20160304
  Serious: Yes (Hospitalization, Other)
  Sender: FDA-Public Use
  Company Number: US-ASTRAZENECA-2015SF03146

PATIENT
  Age: 32949 Day
  Sex: Female
  Weight: 63.5 kg

DRUGS (1)
  1. MERREM [Suspect]
     Active Substance: MEROPENEM
     Indication: URINARY TRACT INFECTION
     Dosage: EVERY EIGHT HOURS
     Route: 041
     Dates: start: 20151015

REACTIONS (4)
  - Unresponsive to stimuli [Not Recovered/Not Resolved]
  - Urinary tract infection [Not Recovered/Not Resolved]
  - Drug dose omission [Not Recovered/Not Resolved]
  - Decreased appetite [Not Recovered/Not Resolved]

NARRATIVE: CASE EVENT DATE: 20151019
